FAERS Safety Report 12068219 (Version 1)
Quarter: 2016Q1

REPORT INFORMATION
  Report Type: Spontaneous
  Country: US (occurrence: US)
  Receive Date: 20160211
  Receipt Date: 20160211
  Transmission Date: 20160526
  Serious: No
  Sender: FDA-Public Use
  Company Number: US-SMITH AND NEPHEW, INC-2015SMT00447

PATIENT
  Age: 48 Year
  Sex: Male
  Weight: 190.48 kg

DRUGS (2)
  1. REGRANEX [Suspect]
     Active Substance: BECAPLERMIN
     Indication: SKIN ULCER
     Dosage: UNK UNK, 2X/DAY
     Route: 061
     Dates: start: 201509
  2. UNSPECIFIED MEDICATION(S) [Concomitant]

REACTIONS (2)
  - Inappropriate schedule of drug administration [Unknown]
  - Application site exfoliation [Unknown]

NARRATIVE: CASE EVENT DATE: 201509
